FAERS Safety Report 9458311 (Version 1)
Quarter: 2013Q3

REPORT INFORMATION
  Report Type: Spontaneous
  Country: US (occurrence: None)
  Receive Date: 20130813
  Receipt Date: 20130813
  Transmission Date: 20140515
  Serious: No
  Sender: FDA-Public Use
  Company Number: None

PATIENT
  Age: 67 Year
  Sex: Male
  Weight: 69.1 kg

DRUGS (2)
  1. ONDANSETRON [Suspect]
     Indication: NAUSEA
     Route: 048
     Dates: start: 20130426, end: 20130430
  2. ONDANSETRON [Suspect]
     Indication: VOMITING
     Route: 048
     Dates: start: 20130426, end: 20130430

REACTIONS (2)
  - Rash generalised [None]
  - Urticaria [None]
